FAERS Safety Report 21332084 (Version 1)
Quarter: 2022Q3

REPORT INFORMATION
  Report Type: Spontaneous
  Country: US (occurrence: None)
  Receive Date: 20220913
  Receipt Date: 20220913
  Transmission Date: 20221027
  Serious: Yes (Other)
  Sender: FDA-Public Use
  Company Number: None

PATIENT
  Age: 27 Year
  Sex: Male

DRUGS (1)
  1. CABENUVA [Suspect]
     Active Substance: CABOTEGRAVIR\RILPIVIRINE
     Indication: HIV infection
     Dosage: FREQUENCY : MONTHLY;?
     Route: 030
     Dates: start: 20220808, end: 20220913

REACTIONS (5)
  - Rash [None]
  - Pain [None]
  - Urticaria [None]
  - Therapy cessation [None]
  - Therapy non-responder [None]

NARRATIVE: CASE EVENT DATE: 20220909
